FAERS Safety Report 13663655 (Version 1)
Quarter: 2017Q2

REPORT INFORMATION
  Report Type: Report from Study
  Country: BR (occurrence: BR)
  Receive Date: 20170619
  Receipt Date: 20170619
  Transmission Date: 20170830
  Serious: Yes (Hospitalization)
  Sender: FDA-Public Use
  Company Number: PHHY2017BR087132

PATIENT
  Sex: Male
  Weight: 20 kg

DRUGS (1)
  1. EXJADE [Suspect]
     Active Substance: DEFERASIROX
     Indication: IRON OVERLOAD
     Dosage: 375 MG, QD (250AND 150 MG)
     Route: 065

REACTIONS (1)
  - Pneumonia [Unknown]
